FAERS Safety Report 7958345-4 (Version None)
Quarter: 2011Q4

REPORT INFORMATION
  Report Type: 
  Country: None (occurrence: None)
  Receive Date: 20111205
  Receipt Date: 20111129
  Transmission Date: 20120403
  Serious: Yes (Hospitalization, Other)
  Sender: FDA-Public Use
  Company Number: JP-ABBOTT-11P-087-0837421-00

PATIENT
  Sex: Female
  Weight: 47 kg

DRUGS (6)
  1. HUMIRA [Suspect]
     Dates: start: 20110511, end: 20110511
  2. MESALAMINE [Concomitant]
     Indication: PRODUCT USED FOR UNKNOWN INDICATION
     Dosage: 3000 MG DAILY
     Route: 048
  3. HUMIRA [Suspect]
     Indication: CROHN'S DISEASE
     Route: 058
     Dates: start: 20110413, end: 20110413
  4. HUMIRA [Suspect]
     Dates: start: 20110427, end: 20110427
  5. TPN [Concomitant]
     Indication: PRODUCT USED FOR UNKNOWN INDICATION
     Dosage: 4 SACHET DAILY
     Route: 048
  6. CLOSTRIDIUM BUTYRICUM [Concomitant]
     Indication: PRODUCT USED FOR UNKNOWN INDICATION
     Dosage: 3 DOSAGE FORMS
     Route: 048

REACTIONS (2)
  - INTESTINAL OBSTRUCTION [None]
  - ANAL STENOSIS [None]
